FAERS Safety Report 6980085-9 (Version None)
Quarter: 2010Q3

REPORT INFORMATION
  Report Type: 
  Country: None (occurrence: None)
  Receive Date: 20100909
  Receipt Date: 20100831
  Transmission Date: 20110219
  Serious: Yes (Hospitalization)
  Sender: FDA-Public Use
  Company Number: CIP10002105

PATIENT
  Age: 64 Year
  Sex: Female

DRUGS (4)
  1. RISEDRONATE SODIUM [Suspect]
     Dosage: DOSAGE/REGIMEN, ORAL
     Route: 048
  2. PREDNISOLONE [Concomitant]
  3. METHOTREXATE [Concomitant]
  4. BUCILLAMINE (BUCILLAMINE) [Concomitant]

REACTIONS (7)
  - BONE EROSION [None]
  - BONE PAIN [None]
  - CREPITATIONS [None]
  - DEVICE COMPONENT ISSUE [None]
  - FRACTURE NONUNION [None]
  - SCAPULA FRACTURE [None]
  - STRESS FRACTURE [None]
